FAERS Safety Report 4778357-1 (Version None)
Quarter: 2005Q3

REPORT INFORMATION
  Report Type: 
  Country: None (occurrence: None)
  Receive Date: 20050926
  Receipt Date: 20050913
  Transmission Date: 20060218
  Serious: Yes (Hospitalization, Disabling)
  Sender: FDA-Public Use
  Company Number: GB-JNJFOC-20050903753

PATIENT
  Age: 45 Year

DRUGS (6)
  1. FENTANYL [Suspect]
     Indication: ANAESTHESIA
     Route: 042
  2. MORPHINE [Suspect]
     Indication: ANALGESIC EFFECT
     Route: 042
  3. CEFUROXIME [Concomitant]
     Route: 065
  4. METRONIDAZOLE [Concomitant]
     Route: 065
  5. PROPOFOL [Concomitant]
     Route: 065
  6. ATRACURIUM BESYLATE [Concomitant]
     Route: 065

REACTIONS (5)
  - COMMUNICATION DISORDER [None]
  - DYSKINESIA [None]
  - DYSPHORIA [None]
  - DYSTONIA [None]
  - HYPERTONIA [None]
